FAERS Safety Report 4847670-1 (Version None)
Quarter: 2005Q4

REPORT INFORMATION
  Report Type: 
  Country: None (occurrence: None)
  Receive Date: 20051205
  Receipt Date: 20051025
  Transmission Date: 20060501
  Serious: No
  Sender: FDA-Public Use
  Company Number: 2005-CZ-01229

PATIENT
  Sex: Male

DRUGS (8)
  1. FUROSEMIDE [Suspect]
     Dosage: UNK
     Route: 065
  2. PREDNISOLONE TAB [Suspect]
     Dosage: UNK
     Route: 065
  3. SALBUTAMOL AEROSOL INHALER BP 100 U G (SALBUTAMOL) [Suspect]
     Dosage: RESPIRATORY (INHALATION)
     Route: 055
  4. BREVA [Suspect]
     Dosage: RESPIRATORY (INHALATION)
     Route: 055
  5. ETIDRONIC ACID [Suspect]
     Dosage: UNK
     Route: 065
  6. GALENIC / FLUTICASONE/ SALMETEROL/ [Suspect]
     Dosage: UNK
     Route: 065
  7. THEOPHYLLINE [Suspect]
     Dosage: UNK
     Route: 065
  8. THEOPHYLLINE [Suspect]
     Dosage: UNK
     Route: 065

REACTIONS (1)
  - DEATH [None]
